FAERS Safety Report 6828622-9 (Version None)
Quarter: 2010Q3

REPORT INFORMATION
  Report Type: 
  Country: None (occurrence: None)
  Receive Date: 20100709
  Receipt Date: 20070214
  Transmission Date: 20110219
  Serious: No
  Sender: FDA-Public Use
  Company Number: US-PFIZER INC-2007009931

PATIENT
  Sex: Female
  Weight: 52.16 kg

DRUGS (5)
  1. CHANTIX [Suspect]
     Indication: SMOKING CESSATION THERAPY
     Dates: start: 20070131
  2. VACCINES [Suspect]
     Dates: start: 20070130, end: 20070130
  3. ZOCOR [Concomitant]
  4. TRIAMTERENE [Concomitant]
  5. AMBIEN [Concomitant]

REACTIONS (3)
  - BODY TEMPERATURE INCREASED [None]
  - GLOSSODYNIA [None]
  - HEART RATE ABNORMAL [None]
